FAERS Safety Report 24093310 (Version 5)
Quarter: 2025Q1

REPORT INFORMATION
  Report Type: Spontaneous
  Country: AT (occurrence: AT)
  Receive Date: 20240715
  Receipt Date: 20250212
  Transmission Date: 20250409
  Serious: Yes (Other)
  Sender: PURDUE
  Company Number: AT-NAPPMUNDI-GBR-2024-0117534

PATIENT
  Age: 52 Year
  Sex: Female

DRUGS (12)
  1. MORPHINE SULFATE [Suspect]
     Active Substance: MORPHINE SULFATE
     Indication: Drug dependence
     Route: 065
  2. MORPHINE SULFATE [Suspect]
     Active Substance: MORPHINE SULFATE
     Route: 065
  3. MORPHINE SULFATE [Suspect]
     Active Substance: MORPHINE SULFATE
     Route: 065
  4. MORPHINE SULFATE [Suspect]
     Active Substance: MORPHINE SULFATE
     Route: 065
  5. MORPHINE SULFATE [Suspect]
     Active Substance: MORPHINE SULFATE
     Route: 065
     Dates: start: 2023
  6. MORPHINE SULFATE [Suspect]
     Active Substance: MORPHINE SULFATE
     Route: 065
     Dates: start: 2023
  7. MORPHINE SULFATE [Suspect]
     Active Substance: MORPHINE SULFATE
     Route: 065
     Dates: start: 2023
  8. MORPHINE SULFATE [Suspect]
     Active Substance: MORPHINE SULFATE
     Route: 065
     Dates: start: 2023
  9. MORPHINE SULFATE [Suspect]
     Active Substance: MORPHINE SULFATE
     Route: 065
     Dates: start: 2023
  10. MORPHINE SULFATE [Suspect]
     Active Substance: MORPHINE SULFATE
     Route: 065
     Dates: start: 2023
  11. FLUNITRAZEPAM [Concomitant]
     Active Substance: FLUNITRAZEPAM
     Indication: Product used for unknown indication
     Route: 065
  12. OXAZEPAM [Concomitant]
     Active Substance: OXAZEPAM
     Indication: Product used for unknown indication
     Route: 065

REACTIONS (38)
  - Food craving [Unknown]
  - Diarrhoea [Unknown]
  - Arrhythmia [Unknown]
  - Nightmare [Unknown]
  - Apathy [Unknown]
  - Quality of life decreased [Unknown]
  - Sedation [Unknown]
  - Drug ineffective [Not Recovered/Not Resolved]
  - Therapy change [Unknown]
  - Localised oedema [Unknown]
  - Oedema peripheral [Unknown]
  - Abdominal discomfort [Unknown]
  - Memory impairment [Unknown]
  - Dysphagia [Unknown]
  - Dry mouth [Unknown]
  - Disorientation [Unknown]
  - Coordination abnormal [Unknown]
  - Breath sounds abnormal [Unknown]
  - Tongue disorder [Unknown]
  - Suspected product quality issue [Unknown]
  - Withdrawal syndrome [Not Recovered/Not Resolved]
  - Product packaging quantity issue [Not Recovered/Not Resolved]
  - Abnormal loss of weight [Unknown]
  - Eye colour change [Unknown]
  - Palpitations [Unknown]
  - Malaise [Unknown]
  - Flushing [Unknown]
  - Hyperhidrosis [Unknown]
  - Vertigo [Unknown]
  - Microsleep [Unknown]
  - Wrong technique in product usage process [Unknown]
  - Inappropriate schedule of product administration [Unknown]
  - Product physical issue [Unknown]
  - Product label issue [Unknown]
  - Product size issue [Unknown]
  - Counterfeit product administered [Unknown]
  - Somnolence [Unknown]
  - Expired product administered [Unknown]

NARRATIVE: CASE EVENT DATE: 20230101
